FAERS Safety Report 9324356 (Version 1)
Quarter: 2013Q2

REPORT INFORMATION
  Report Type: Spontaneous
  Country: CA (occurrence: CA)
  Receive Date: 20130603
  Receipt Date: 20130603
  Transmission Date: 20140414
  Serious: Yes (Other)
  Sender: FDA-Public Use
  Company Number: CA-TEVA-409473USA

PATIENT
  Age: 70 Year
  Sex: Male

DRUGS (1)
  1. CITALOPRAM [Suspect]
     Dosage: 20 MILLIGRAM DAILY;
     Route: 048

REACTIONS (4)
  - Condition aggravated [Unknown]
  - Depression [Unknown]
  - Drug ineffective [Unknown]
  - Product substitution issue [Unknown]
